FAERS Safety Report 19483937 (Version 2)
Quarter: 2021Q3

REPORT INFORMATION
  Report Type: Spontaneous
  Country: VE (occurrence: VE)
  Receive Date: 20210701
  Receipt Date: 20210928
  Transmission Date: 20211014
  Serious: Yes (Death, Hospitalization)
  Sender: FDA-Public Use
  Company Number: NVSC2020VE250261

PATIENT
  Sex: Male

DRUGS (2)
  1. GLIVEC [Suspect]
     Active Substance: IMATINIB MESYLATE
     Indication: CHRONIC MYELOID LEUKAEMIA
     Dosage: 400 MG, QD (4X100 MG TABLETS) (DISCONTINUED)
     Route: 065
  2. GLIVEC [Suspect]
     Active Substance: IMATINIB MESYLATE
     Dosage: 800 MG, QD
     Route: 065

REACTIONS (9)
  - Haemoglobin abnormal [Unknown]
  - White blood cell count abnormal [Unknown]
  - COVID-19 [Unknown]
  - Death [Fatal]
  - Malaise [Unknown]
  - Influenza [Unknown]
  - White blood cell count decreased [Unknown]
  - Platelet count abnormal [Unknown]
  - Cough [Unknown]
